FAERS Safety Report 16361360 (Version 1)
Quarter: 2019Q2

REPORT INFORMATION
  Report Type: Spontaneous
  Country: FR (occurrence: FR)
  Receive Date: 20190528
  Receipt Date: 20190528
  Transmission Date: 20190711
  Serious: Yes (Hospitalization)
  Sender: FDA-Public Use
  Company Number: FR-BAYER-2019-096607

PATIENT
  Age: 64 Year
  Sex: Male
  Weight: 72.3 kg

DRUGS (10)
  1. CIFLOX [Suspect]
     Active Substance: CIPROFLOXACIN
     Indication: SERRATIA SEPSIS
     Dosage: 1000 MG, QD
     Route: 048
     Dates: start: 20190222, end: 20190304
  2. AMIKACINE [AMIKACIN] [Suspect]
     Active Substance: AMIKACIN
     Indication: SERRATIA SEPSIS
     Dosage: 250 MG, QD
     Route: 042
     Dates: start: 20190222, end: 20190304
  3. SPECIAFOLDINE [Concomitant]
     Active Substance: FOLIC ACID
     Dosage: UNK
  4. BLEOMYCINE BELLON [Interacting]
     Active Substance: BLEOMYCIN SULFATE
     Indication: PROSTATE CANCER
     Dosage: 30 MG, UNK
     Route: 042
     Dates: start: 20190211, end: 20190225
  5. CISPLATINE [Suspect]
     Active Substance: CISPLATIN
     Indication: PROSTATE CANCER
     Dosage: 37 MG, QD
     Route: 042
     Dates: start: 20190211, end: 20190215
  6. BROMAZEPAM [Concomitant]
     Active Substance: BROMAZEPAM
     Dosage: UNK
  7. ETOPOSIDE MYLAN [Suspect]
     Active Substance: ETOPOSIDE
     Indication: PROSTATE CANCER
     Dosage: 184 MG, QD
     Route: 042
     Dates: start: 20190211, end: 20190215
  8. GAVISCON [ALUMINIUM HYDROXIDE;CALCIUM CARBONATE;SODIUM ALGINATE;SO [Concomitant]
     Dosage: UNK
  9. ZYMAD [Concomitant]
     Active Substance: CHOLECALCIFEROL
     Dosage: UNK
  10. ZARZIO [Interacting]
     Active Substance: FILGRASTIM
     Indication: NEUTROPENIA
     Dosage: 1 DF, QD
     Route: 058
     Dates: start: 20190223, end: 20190226

REACTIONS (1)
  - Lung disorder [Not Recovered/Not Resolved]

NARRATIVE: CASE EVENT DATE: 20190304
